FAERS Safety Report 7622576-3 (Version None)
Quarter: 2011Q3

REPORT INFORMATION
  Report Type: 
  Country: None (occurrence: None)
  Receive Date: 20110719
  Receipt Date: 20110719
  Transmission Date: 20111222
  Serious: No
  Sender: FDA-Public Use
  Company Number: None

PATIENT
  Age: 56 Year
  Sex: Female
  Weight: 81.6475 kg

DRUGS (1)
  1. METFORMIN HCL [Suspect]
     Indication: BLOOD GLUCOSE INCREASED
     Dosage: 1 TAB AT BEDTIME PO YEARS
     Route: 048
     Dates: start: 20090710, end: 20110707

REACTIONS (7)
  - GAIT DISTURBANCE [None]
  - PRODUCT SUBSTITUTION ISSUE [None]
  - PRODUCT SIZE ISSUE [None]
  - DYSPHAGIA [None]
  - ARTHRALGIA [None]
  - PRODUCT SHAPE ISSUE [None]
  - PLANTAR FASCIITIS [None]
